FAERS Safety Report 19043709 (Version 1)
Quarter: 2021Q1

REPORT INFORMATION
  Report Type: Spontaneous
  Country: JP (occurrence: JP)
  Receive Date: 20210323
  Receipt Date: 20210323
  Transmission Date: 20210420
  Serious: Yes (Other)
  Sender: FDA-Public Use
  Company Number: NVSJ2021JP004590

PATIENT
  Age: 19 Year
  Sex: Male

DRUGS (1)
  1. TEGRETOL [Suspect]
     Active Substance: CARBAMAZEPINE
     Indication: EPILEPSY
     Dosage: UNK
     Route: 048

REACTIONS (6)
  - Decreased activity [Unknown]
  - Vomiting [Unknown]
  - Hypophagia [Unknown]
  - Anticonvulsant drug level above therapeutic [Unknown]
  - Drug dependence [Unknown]
  - Product preparation issue [Unknown]
